FAERS Safety Report 12858228 (Version 2)
Quarter: 2017Q1

REPORT INFORMATION
  Report Type: Spontaneous
  Country: US (occurrence: US)
  Receive Date: 20161018
  Receipt Date: 20170215
  Transmission Date: 20170428
  Serious: No
  Sender: FDA-Public Use
  Company Number: US-CELGENEUS-USA-2016103261

PATIENT
  Age: 14 Year
  Sex: Female

DRUGS (10)
  1. OTEZLA [Suspect]
     Active Substance: APREMILAST
     Indication: PSORIASIS
  2. METHOTREXATE. [Concomitant]
     Active Substance: METHOTREXATE
     Indication: PSORIASIS
  3. FOLIC ACID. [Concomitant]
     Active Substance: FOLIC ACID
     Indication: JUVENILE PSORIATIC ARTHRITIS
     Dosage: 2 MILLIGRAM
     Route: 065
     Dates: start: 2012
  4. METHOTREXATE. [Concomitant]
     Active Substance: METHOTREXATE
     Indication: UVEITIS
  5. FOLIC ACID. [Concomitant]
     Active Substance: FOLIC ACID
     Indication: UVEITIS
  6. REMICADE [Concomitant]
     Active Substance: INFLIXIMAB
     Indication: UVEITIS
  7. FOLIC ACID. [Concomitant]
     Active Substance: FOLIC ACID
     Indication: PSORIASIS
  8. REMICADE [Concomitant]
     Active Substance: INFLIXIMAB
     Indication: JUVENILE PSORIATIC ARTHRITIS
     Route: 065
     Dates: start: 201306
  9. METHOTREXATE. [Concomitant]
     Active Substance: METHOTREXATE
     Indication: JUVENILE PSORIATIC ARTHRITIS
     Dosage: 1.7857 MILLIGRAM
     Route: 058
     Dates: start: 2012
  10. OTEZLA [Suspect]
     Active Substance: APREMILAST
     Indication: JUVENILE PSORIATIC ARTHRITIS
     Dosage: 60 MILLIGRAM
     Route: 048
     Dates: start: 201605

REACTIONS (2)
  - Vomiting [Recovered/Resolved]
  - Nausea [Recovered/Resolved]

NARRATIVE: CASE EVENT DATE: 20161005
